FAERS Safety Report 10144234 (Version 1)
Quarter: 2014Q2

REPORT INFORMATION
  Report Type: Spontaneous
  Country: IT (occurrence: IT)
  Receive Date: 20140430
  Receipt Date: 20140430
  Transmission Date: 20141212
  Serious: Yes (Death, Hospitalization)
  Sender: FDA-Public Use
  Company Number: PHHY2014IT049399

PATIENT
  Age: 98 Year
  Sex: Male

DRUGS (1)
  1. CIPROFLOXACIN [Suspect]
     Indication: HAEMATURIA

REACTIONS (11)
  - Death [Fatal]
  - Coma [Unknown]
  - Haemorrhagic diathesis [Unknown]
  - Haemorrhage intracranial [Unknown]
  - Acquired haemophilia [Unknown]
  - Hemiplegia [Unknown]
  - Haematemesis [Unknown]
  - Activated partial thromboplastin time prolonged [Unknown]
  - Anaemia [Unknown]
  - Haematuria [Unknown]
  - Drug ineffective [Unknown]
